FAERS Safety Report 18050901 (Version 1)
Quarter: 2020Q3

REPORT INFORMATION
  Report Type: Spontaneous
  Country: DE (occurrence: DE)
  Receive Date: 20200721
  Receipt Date: 20200721
  Transmission Date: 20201103
  Serious: Yes (Other)
  Sender: FDA-Public Use
  Company Number: NVSC2020DE198364

PATIENT
  Age: 46 Year
  Sex: Female
  Weight: 98 kg

DRUGS (6)
  1. AMOXICILLIN. [Suspect]
     Active Substance: AMOXICILLIN
     Indication: PRODUCT USED FOR UNKNOWN INDICATION
     Dosage: 1000 MG, Q12H, (1?0?1?0)
     Route: 065
     Dates: start: 20200320, end: 20200513
  2. UNACID (AMPICILLIN SODIUM\SULBACTAM SODIUM) [Suspect]
     Active Substance: AMPICILLIN SODIUM\SULBACTAM SODIUM
     Indication: PRODUCT USED FOR UNKNOWN INDICATION
     Dosage: 375 MG, (2?0?2?0)
     Route: 065
     Dates: start: 20200302, end: 20200319
  3. AMOXI?CLAVULAN [Suspect]
     Active Substance: AMOXICILLIN\CLAVULANATE POTASSIUM
     Dosage: SEIT 22.05.: 1?0?1?0
     Route: 048
  4. CIPROFLOXACIN. [Suspect]
     Active Substance: CIPROFLOXACIN
     Indication: OSTEOMYELITIS
     Dosage: 1000 MG, QD, (500 MG, 1?0?1?0)
     Route: 048
     Dates: start: 20200522
  5. AMOXI?CLAVULAN [Suspect]
     Active Substance: AMOXICILLIN\CLAVULANATE POTASSIUM
     Indication: OSTEOMYELITIS
     Dosage: 875/125 MG, VON 14.05.?21.05.: 1?1?1?0,
     Route: 048
     Dates: start: 20200514, end: 20200521
  6. METRONIDAZOLE. [Suspect]
     Active Substance: METRONIDAZOLE
     Indication: PRODUCT USED FOR UNKNOWN INDICATION
     Dosage: 400 MG
     Route: 065
     Dates: start: 20200514, end: 20200521

REACTIONS (22)
  - Vulvovaginal rash [Not Recovered/Not Resolved]
  - Mental disorder [Unknown]
  - Muscle twitching [Not Recovered/Not Resolved]
  - Diarrhoea [Not Recovered/Not Resolved]
  - Headache [Not Recovered/Not Resolved]
  - Arthralgia [Not Recovered/Not Resolved]
  - General physical health deterioration [Not Recovered/Not Resolved]
  - Depression [Not Recovered/Not Resolved]
  - Acne [Not Recovered/Not Resolved]
  - Abdominal discomfort [Not Recovered/Not Resolved]
  - Haematochezia [Not Recovered/Not Resolved]
  - Suicidal ideation [Not Recovered/Not Resolved]
  - Vulvovaginal pruritus [Not Recovered/Not Resolved]
  - Pruritus [Not Recovered/Not Resolved]
  - Rash [Not Recovered/Not Resolved]
  - Weight decreased [Not Recovered/Not Resolved]
  - Abdominal pain upper [Not Recovered/Not Resolved]
  - Neck pain [Not Recovered/Not Resolved]
  - Skin erosion [Not Recovered/Not Resolved]
  - Myalgia [Not Recovered/Not Resolved]
  - Irritability [Not Recovered/Not Resolved]
  - Oral candidiasis [Not Recovered/Not Resolved]

NARRATIVE: CASE EVENT DATE: 2020
